FAERS Safety Report 12763832 (Version 1)
Quarter: 2016Q3

REPORT INFORMATION
  Report Type: Spontaneous
  Country: FR (occurrence: FR)
  Receive Date: 20160920
  Receipt Date: 20160920
  Transmission Date: 20161109
  Serious: Yes (Hospitalization, Disabling, Other)
  Sender: FDA-Public Use
  Company Number: FR-BRISTOL-MYERS SQUIBB COMPANY-BMS-2016-074596

PATIENT
  Age: 86 Year
  Sex: Male

DRUGS (4)
  1. COUMADINE [Suspect]
     Active Substance: WARFARIN SODIUM
     Indication: ARRHYTHMIA
     Dosage: UNK
     Route: 048
  2. INNOHEP [Suspect]
     Active Substance: TINZAPARIN SODIUM
     Dosage: 8000 IU, QD
     Route: 058
  3. DIGOXIN. [Concomitant]
     Active Substance: DIGOXIN
     Indication: PRODUCT USED FOR UNKNOWN INDICATION
     Route: 065
  4. INNOHEP [Suspect]
     Active Substance: TINZAPARIN SODIUM
     Indication: PRODUCT USED FOR UNKNOWN INDICATION
     Dosage: 14000 IU, QD
     Route: 058

REACTIONS (8)
  - Transfusion [Unknown]
  - Fall [Unknown]
  - Abdominal wall haematoma [Recovered/Resolved]
  - Malaise [Unknown]
  - Anaemia [Recovered/Resolved]
  - Bedridden [Recovered/Resolved]
  - Abdominal pain [Unknown]
  - Hypotension [Unknown]

NARRATIVE: CASE EVENT DATE: 20160208
